FAERS Safety Report 19435734 (Version 1)
Quarter: 2021Q2

REPORT INFORMATION
  Report Type: Spontaneous
  Country: JP (occurrence: JP)
  Receive Date: 20210618
  Receipt Date: 20210618
  Transmission Date: 20210717
  Serious: Yes (Death, Life-Threatening, Hospitalization, Other)
  Sender: FDA-Public Use
  Company Number: JP-STRIDES ARCOLAB LIMITED-2021SP006519

PATIENT
  Age: 69 Year
  Sex: Male

DRUGS (2)
  1. CABAZITAXEL ACETONE [Suspect]
     Active Substance: CABAZITAXEL
     Indication: PROSTATE CANCER
     Dosage: UNK
     Route: 065
  2. PREDNISOLONE. [Suspect]
     Active Substance: PREDNISOLONE
     Indication: PROSTATE CANCER
     Dosage: 10 MILLIGRAM/DAY
     Route: 065

REACTIONS (5)
  - Cardio-respiratory arrest [Fatal]
  - Sepsis [Fatal]
  - Clostridial infection [Fatal]
  - Haemolysis [Fatal]
  - Disseminated intravascular coagulation [Fatal]
